FAERS Safety Report 7069666-4 (Version None)
Quarter: 2010Q4

REPORT INFORMATION
  Report Type: 
  Country: None (occurrence: None)
  Receive Date: 20101028
  Receipt Date: 20100412
  Transmission Date: 20110411
  Serious: No
  Sender: FDA-Public Use
  Company Number: US-WYE-H14566410

PATIENT
  Sex: Male

DRUGS (1)
  1. PROTONIX [Suspect]
     Dosage: UNKNOWN DOSE, PROTONIX DRIP
     Route: 042
     Dates: start: 20100101, end: 20100101

REACTIONS (2)
  - ERYTHEMA [None]
  - INFUSION SITE EXTRAVASATION [None]
